FAERS Safety Report 8468911-8 (Version None)
Quarter: 2012Q2

REPORT INFORMATION
  Report Type: 
  Country: None (occurrence: None)
  Receive Date: 20120626
  Receipt Date: 20120618
  Transmission Date: 20120825
  Serious: Yes (Hospitalization)
  Sender: FDA-Public Use
  Company Number: US-ELI_LILLY_AND_COMPANY-US201206005755

PATIENT
  Age: 63 Year
  Sex: Male
  Weight: 123.9 kg

DRUGS (9)
  1. DOCUSATE [Concomitant]
  2. METOPROLOL TARTRATE [Concomitant]
  3. SUNITINIB MALATE [Suspect]
     Indication: RENAL CELL CARCINOMA
     Dosage: 37.5 MG, ONCE DAILY FOR 14 DAYS AND THEN 1 WEEK OFF
     Route: 048
     Dates: start: 20120430
  4. AMLODIPINE [Concomitant]
  5. LIPITOR [Concomitant]
  6. GEMCITABINE HYDROCHLORIDE [Suspect]
     Indication: RENAL CELL CARCINOMA
     Dosage: 1000 MG/M2, EVERY TWO WEEKS, THEN 1 WEEK OFF
     Route: 042
     Dates: start: 20120430
  7. LORAZEPAM [Concomitant]
  8. ACETYLSALICYLIC ACID SRT [Concomitant]
  9. VITAMIN D [Concomitant]

REACTIONS (1)
  - SYNCOPE [None]
